FAERS Safety Report 5309167-4 (Version None)
Quarter: 2007Q2

REPORT INFORMATION
  Report Type: 
  Country: None (occurrence: None)
  Receive Date: 20070423
  Receipt Date: 20070412
  Transmission Date: 20071010
  Serious: Yes (Hospitalization, Other)
  Sender: FDA-Public Use
  Company Number: 2007SP005814

PATIENT
  Age: 50 Year
  Sex: Male
  Weight: 73.9363 kg

DRUGS (3)
  1. PEG-INTRON [Suspect]
     Indication: HEPATITIS C
     Dosage: 120 MCG
     Dates: start: 20070223, end: 20070309
  2. RIBAVIRIN [Suspect]
     Indication: HEPATITIS C
     Dosage: 800 MG; QD; PO
     Route: 048
     Dates: start: 20070223, end: 20070309
  3. PERCOCET [Concomitant]

REACTIONS (25)
  - AMNESIA [None]
  - ASTHENIA [None]
  - CARDIAC DISORDER [None]
  - CHILLS [None]
  - CONFUSIONAL STATE [None]
  - DISTURBANCE IN ATTENTION [None]
  - DYSPNOEA [None]
  - FATIGUE [None]
  - GAIT DISTURBANCE [None]
  - GENERALISED OEDEMA [None]
  - HEART RATE INCREASED [None]
  - HYPERVENTILATION [None]
  - HYPOTHYROIDISM [None]
  - INJECTION SITE PAIN [None]
  - INSOMNIA [None]
  - MALAISE [None]
  - MYALGIA [None]
  - NERVE INJURY [None]
  - ORAL INFECTION [None]
  - PAIN [None]
  - PAIN IN EXTREMITY [None]
  - PARAESTHESIA ORAL [None]
  - PYREXIA [None]
  - TOOTH LOSS [None]
  - WEIGHT DECREASED [None]
